FAERS Safety Report 7559910-9 (Version None)
Quarter: 2011Q2

REPORT INFORMATION
  Report Type: 
  Country: None (occurrence: None)
  Receive Date: 20110614
  Receipt Date: 20110531
  Transmission Date: 20111010
  Serious: Yes (Other)
  Sender: FDA-Public Use
  Company Number: 2011MA006969

PATIENT
  Sex: Female

DRUGS (3)
  1. LAMOTRIGINE [Suspect]
     Indication: EPILEPSY
     Dates: start: 20090901
  2. VALPROIC ACID [Concomitant]
  3. DIAZEPAM [Suspect]
     Indication: DIZZINESS

REACTIONS (5)
  - DIZZINESS [None]
  - EPISTAXIS [None]
  - INJURY [None]
  - BALANCE DISORDER [None]
  - FALL [None]
